FAERS Safety Report 20228424 (Version 1)
Quarter: 2021Q4

REPORT INFORMATION
  Report Type: Report from Study
  Country: US (occurrence: US)
  Receive Date: 20211224
  Receipt Date: 20211224
  Transmission Date: 20220304
  Serious: Yes (Other)
  Sender: FDA-Public Use
  Company Number: US-GILEAD-2021-0562948

PATIENT
  Sex: Male

DRUGS (1)
  1. EMTRICITABINE\TENOFOVIR [Suspect]
     Active Substance: EMTRICITABINE\TENOFOVIR
     Indication: Prophylaxis against HIV infection
     Route: 065

REACTIONS (6)
  - Seizure [Unknown]
  - Poisoning [Unknown]
  - Tinnitus [Unknown]
  - Feeling abnormal [Unknown]
  - Confusional state [Unknown]
  - Anxiety [Unknown]
